FAERS Safety Report 5675746-8 (Version None)
Quarter: 2008Q1

REPORT INFORMATION
  Report Type: 
  Country: None (occurrence: None)
  Receive Date: 20080321
  Receipt Date: 20080312
  Transmission Date: 20080703
  Serious: Yes (Hospitalization)
  Sender: FDA-Public Use
  Company Number: PHBS2008GR02194

PATIENT
  Age: 36 Year
  Sex: Male

DRUGS (3)
  1. MUSCORIL [Suspect]
     Indication: MYALGIA
     Route: 030
     Dates: start: 20080115
  2. MESULID [Suspect]
     Dosage: 3 TABLETS
     Route: 048
  3. VOLTAREN [Suspect]
     Indication: MYALGIA
     Route: 030
     Dates: start: 20080115

REACTIONS (2)
  - DRUG INTERACTION [None]
  - LARYNGEAL OEDEMA [None]
